FAERS Safety Report 6679028-7 (Version None)
Quarter: 2010Q2

REPORT INFORMATION
  Report Type: 
  Country: None (occurrence: None)
  Receive Date: 20100409
  Receipt Date: 20100401
  Transmission Date: 20101027
  Serious: Yes (Other)
  Sender: FDA-Public Use
  Company Number: 20108557

PATIENT
  Age: 8 Year
  Sex: Male

DRUGS (1)
  1. LIORESAL [Suspect]
     Indication: MUSCLE SPASTICITY
     Dosage: MCG, DAILY, INTRATHECAL
     Route: 037

REACTIONS (11)
  - CONSTIPATION [None]
  - DEVICE MALFUNCTION [None]
  - HAEMATOMA [None]
  - HYPERTONIA [None]
  - INJURY [None]
  - INTRACRANIAL HYPOTENSION [None]
  - MEDICAL DEVICE COMPLICATION [None]
  - NUCLEAR MAGNETIC RESONANCE IMAGING BRAIN ABNORMAL [None]
  - OEDEMA [None]
  - SEROMA [None]
  - WITHDRAWAL SYNDROME [None]
